FAERS Safety Report 6603608-8 (Version None)
Quarter: 2010Q1

REPORT INFORMATION
  Report Type: 
  Country: None (occurrence: None)
  Receive Date: 20100226
  Receipt Date: 20091123
  Transmission Date: 20100710
  Serious: No
  Sender: FDA-Public Use
  Company Number: A0823494A

PATIENT
  Age: 33 Year
  Sex: Male

DRUGS (3)
  1. VALTREX [Suspect]
     Indication: GENITAL HERPES
     Dosage: 1G PER DAY
     Route: 048
     Dates: start: 20050101
  2. ZINC OXIDE OINTMENT [Concomitant]
  3. LYSINE [Concomitant]

REACTIONS (1)
  - DRUG INEFFECTIVE [None]
